APPROVED DRUG PRODUCT: CHLORTHALIDONE
Active Ingredient: CHLORTHALIDONE
Strength: 50MG
Dosage Form/Route: TABLET;ORAL
Application: A211320 | Product #002 | TE Code: AB
Applicant: INVENTIA HEALTHCARE LTD
Approved: Feb 9, 2022 | RLD: No | RS: No | Type: RX